FAERS Safety Report 20523755 (Version 1)
Quarter: 2022Q1

REPORT INFORMATION
  Report Type: Report from Study
  Country: BR (occurrence: BR)
  Receive Date: 20220228
  Receipt Date: 20220228
  Transmission Date: 20220423
  Serious: Yes (Death)
  Sender: FDA-Public Use
  Company Number: BR-TEVA-2018-BR-950381

PATIENT

DRUGS (8)
  1. OXALIPLATIN [Suspect]
     Active Substance: OXALIPLATIN
     Indication: Pancreatic carcinoma metastatic
     Route: 065
  2. IRINOTECAN [Suspect]
     Active Substance: IRINOTECAN
     Indication: Pancreatic carcinoma metastatic
     Route: 065
  3. LEUCOVORIN [Suspect]
     Active Substance: LEUCOVORIN
     Indication: Pancreatic carcinoma metastatic
     Route: 065
  4. FLUOROURACIL [Suspect]
     Active Substance: FLUOROURACIL
     Indication: Pancreatic carcinoma metastatic
     Dosage: ROUTE OF ADMINISTRATION: BOLUS AND CONTINUOUS INFUSION
     Route: 050
  5. DEXAMETHASONE [Concomitant]
     Active Substance: DEXAMETHASONE
     Indication: Prophylaxis of nausea and vomiting
     Dosage: BEFORE THE START OF EACH CYCLE OF CHEMOTHERAPY
     Route: 042
  6. ONDANSETRON [Concomitant]
     Active Substance: ONDANSETRON
     Indication: Prophylaxis of nausea and vomiting
     Dosage: BEFORE THE START OF EACH CYCLE OF CHEMOTHERAPY
     Route: 042
  7. ONDANSETRON [Concomitant]
     Active Substance: ONDANSETRON
     Indication: Prophylaxis of nausea and vomiting
     Dosage: LATER, ONDANSETRON WAS USED UP TO THE THIRD DAY OF CHEMOTHERAPY.
     Route: 048
  8. ATROPINE [Concomitant]
     Active Substance: ATROPINE
     Route: 065

REACTIONS (2)
  - Febrile neutropenia [Fatal]
  - Abdominal infection [Fatal]
